FAERS Safety Report 15736865 (Version 1)
Quarter: 2018Q4

REPORT INFORMATION
  Report Type: Spontaneous
  Country: JP (occurrence: JP)
  Receive Date: 20181218
  Receipt Date: 20181218
  Transmission Date: 20190205
  Serious: Yes (Hospitalization)
  Sender: FDA-Public Use
  Company Number: JP-EISAI MEDICAL RESEARCH-EC-2018-049266

PATIENT
  Age: 76 Year
  Sex: Male

DRUGS (1)
  1. LENVIMA [Suspect]
     Active Substance: LENVATINIB
     Indication: HEPATOCELLULAR CARCINOMA
     Route: 048
     Dates: start: 20181123, end: 20181205

REACTIONS (5)
  - Blood albumin decreased [Recovering/Resolving]
  - Hepatic encephalopathy [Not Recovered/Not Resolved]
  - Hyperammonaemia [Recovering/Resolving]
  - Blood bilirubin increased [Recovering/Resolving]
  - Ascites [Recovering/Resolving]

NARRATIVE: CASE EVENT DATE: 20181205
